FAERS Safety Report 8698068 (Version 2)
Quarter: 2013Q4

REPORT INFORMATION
  Report Type: Spontaneous
  Country: US (occurrence: US)
  Receive Date: 20120802
  Receipt Date: 20131101
  Transmission Date: 20140711
  Serious: No
  Sender: FDA-Public Use
  Company Number: US-009507513-1207USA009958

PATIENT
  Sex: Female

DRUGS (7)
  1. ZOCOR [Suspect]
     Dosage: 20 MG, QD
     Route: 048
  2. ATORVASTATIN CALCIUM [Suspect]
     Dosage: UNK
  3. PINDOLOL [Concomitant]
     Dosage: UNK
  4. PLAVIX [Concomitant]
  5. AMLODIPINE [Concomitant]
  6. LORAZEPAM [Concomitant]
     Dosage: UNK, PRN
  7. ACIPHEX [Concomitant]

REACTIONS (2)
  - Insomnia [Unknown]
  - Adverse reaction [Unknown]
